FAERS Safety Report 22399265 (Version 2)
Quarter: 2023Q2

REPORT INFORMATION
  Report Type: Spontaneous
  Country: US (occurrence: US)
  Receive Date: 20230602
  Receipt Date: 20230608
  Transmission Date: 20230722
  Serious: No
  Sender: FDA-Public Use
  Company Number: US-TAKEDA-2023TUS053893

PATIENT
  Sex: Female
  Weight: 54 kg

DRUGS (1)
  1. VYVANSE [Suspect]
     Active Substance: LISDEXAMFETAMINE DIMESYLATE
     Indication: Attention deficit hyperactivity disorder
     Dosage: 60 MILLIGRAM
     Route: 065
     Dates: start: 202212

REACTIONS (7)
  - Panic attack [Unknown]
  - Disturbance in attention [Unknown]
  - Weight increased [Unknown]
  - Increased appetite [Unknown]
  - Therapeutic product effect variable [Unknown]
  - Counterfeit product administered [Unknown]
  - Drug ineffective [Unknown]
